FAERS Safety Report 8918767 (Version 2)
Quarter: 2013Q1

REPORT INFORMATION
  Report Type: Spontaneous
  Country: US (occurrence: US)
  Receive Date: 20121120
  Receipt Date: 20130305
  Transmission Date: 20140127
  Serious: No
  Sender: FDA-Public Use
  Company Number: US-ASTRAZENECA-2012SE20827

PATIENT
  Age: 79 Year
  Sex: Male
  Weight: 80.3 kg

DRUGS (4)
  1. NEXIUM [Suspect]
     Indication: BARRETT^S OESOPHAGUS
     Route: 048
  2. PRILOSEC [Suspect]
     Indication: BARRETT^S OESOPHAGUS
     Route: 048
  3. LISINOPRIL [Concomitant]
     Indication: CARDIAC DISORDER
     Route: 048
  4. SIMVASTATIN [Concomitant]
     Indication: CARDIAC DISORDER

REACTIONS (3)
  - Hypoacusis [Unknown]
  - Off label use [Unknown]
  - Drug ineffective for unapproved indication [Unknown]
